FAERS Safety Report 5643054-7 (Version None)
Quarter: 2008Q1

REPORT INFORMATION
  Report Type: 
  Country: None (occurrence: None)
  Receive Date: 20080228
  Receipt Date: 20080218
  Transmission Date: 20080703
  Serious: Yes (Death, Life-Threatening)
  Sender: FDA-Public Use
  Company Number: JP-MERCK-0607USA00151

PATIENT
  Age: 85 Year
  Sex: Female

DRUGS (5)
  1. PRIMAXIN [Suspect]
     Indication: PNEUMONIA
     Route: 041
     Dates: start: 20060613, end: 20060628
  2. VANCOMYCIN HYDROCHLORIDE [Concomitant]
     Indication: PNEUMONIA STAPHYLOCOCCAL
     Route: 048
     Dates: start: 20060619, end: 20060628
  3. NAUZELIN [Concomitant]
     Indication: NAUSEA
     Route: 065
     Dates: start: 20060626, end: 20060629
  4. CLOSTRIDIUM BUTYRICUM [Concomitant]
     Indication: PNEUMONIA
     Route: 048
     Dates: start: 20060619, end: 20060628
  5. GASMOTIN [Concomitant]
     Route: 048
     Dates: start: 20060626, end: 20060629

REACTIONS (2)
  - ALTERED STATE OF CONSCIOUSNESS [None]
  - HYPOGLYCAEMIA [None]
